FAERS Safety Report 4365598-0 (Version None)
Quarter: 2004Q2

REPORT INFORMATION
  Report Type: 
  Country: None (occurrence: None)
  Receive Date: 20040526
  Receipt Date: 20020304
  Transmission Date: 20050107
  Serious: Yes (Death, Hospitalization)
  Sender: FDA-Public Use
  Company Number: US-MERCK-0203USA00347

PATIENT
  Age: 55 Year
  Sex: Male
  Weight: 77 kg

DRUGS (2)
  1. ZESTRIL [Concomitant]
     Route: 065
     Dates: start: 20000901
  2. VIOXX [Suspect]
     Indication: PLEURISY
     Route: 048
     Dates: start: 20010201, end: 20010221

REACTIONS (46)
  - ACUTE RESPIRATORY FAILURE [None]
  - ALANINE AMINOTRANSFERASE INCREASED [None]
  - AREFLEXIA [None]
  - ASPARTATE AMINOTRANSFERASE INCREASED [None]
  - BASILAR ARTERY OCCLUSION [None]
  - BLOOD ALBUMIN DECREASED [None]
  - BLOOD AMYLASE INCREASED [None]
  - BLOOD PRESSURE SYSTOLIC DECREASED [None]
  - BRADYCARDIA [None]
  - BRAIN HERNIATION [None]
  - BRAIN STEM INFARCTION [None]
  - CARDIAC MURMUR [None]
  - CARDIO-RESPIRATORY ARREST [None]
  - CEREBELLAR INFARCTION [None]
  - CEREBRAL HAEMORRHAGE [None]
  - CEREBRAL INFARCTION [None]
  - CEREBRAL ISCHAEMIA [None]
  - COMA [None]
  - DEHYDRATION [None]
  - EMBOLIC STROKE [None]
  - GASTROINTESTINAL HAEMORRHAGE [None]
  - HAEMATEMESIS [None]
  - HAEMATOCRIT DECREASED [None]
  - HEPATIC FUNCTION ABNORMAL [None]
  - IDIOPATHIC THROMBOCYTOPENIC PURPURA [None]
  - INFLUENZA LIKE ILLNESS [None]
  - LEUKOCYTOSIS [None]
  - LIPOMA [None]
  - LOSS OF CONSCIOUSNESS [None]
  - MALNUTRITION [None]
  - MIOSIS [None]
  - MITRAL VALVE INCOMPETENCE [None]
  - MITRAL VALVE PROLAPSE [None]
  - MYDRIASIS [None]
  - MYOCARDIAL INFARCTION [None]
  - NEPHROPATHY [None]
  - NERVOUS SYSTEM DISORDER [None]
  - PERICARDIAL EFFUSION [None]
  - POSTURING [None]
  - PYREXIA [None]
  - RENAL FAILURE [None]
  - RENAL IMPAIRMENT [None]
  - RHONCHI [None]
  - TRANSFUSION REACTION [None]
  - TROPONIN INCREASED [None]
  - VIRAL INFECTION [None]
